FAERS Safety Report 26196474 (Version 1)
Quarter: 2025Q4

REPORT INFORMATION
  Report Type: Report from Study
  Country: US (occurrence: US)
  Receive Date: 20251224
  Receipt Date: 20251224
  Transmission Date: 20260118
  Serious: Yes (Other)
  Sender: ABBVIE
  Company Number: US-ABBVIE-6603393

PATIENT
  Age: 37 Year
  Sex: Female

DRUGS (1)
  1. HUMIRA [Suspect]
     Active Substance: ADALIMUMAB
     Indication: Product used for unknown indication
     Dosage: CITRATE FREE
     Route: 058
     Dates: start: 20080301

REACTIONS (7)
  - Carpal tunnel decompression [Recovered/Resolved]
  - Rash [Recovering/Resolving]
  - Swelling [Unknown]
  - Burning sensation [Unknown]
  - Ankle fracture [Recovered/Resolved]
  - Pruritus [Unknown]
  - Fascial rupture [Recovered/Resolved]

NARRATIVE: CASE EVENT DATE: 20120101
